FAERS Safety Report 4534913-7 (Version None)
Quarter: 2004Q4

REPORT INFORMATION
  Report Type: 
  Country: None (occurrence: None)
  Receive Date: 20041222
  Receipt Date: 20040728
  Transmission Date: 20050328
  Serious: No
  Sender: FDA-Public Use
  Company Number: US-BRISTOL-MYERS SQUIBB COMPANY-12654182

PATIENT
  Age: 7 Decade
  Sex: Female
  Weight: 77 kg

DRUGS (9)
  1. PRAVACHOL [Suspect]
     Indication: BLOOD CHOLESTEROL INCREASED
  2. TRANXENE [Concomitant]
     Indication: ANXIETY
  3. LASIX [Concomitant]
     Indication: OEDEMA PERIPHERAL
  4. POTASSIUM [Concomitant]
  5. VITAMIN E [Concomitant]
  6. COENZYME Q10 [Concomitant]
  7. FLEXERIL [Concomitant]
     Indication: MUSCLE SPASMS
  8. MULTIVITAMIN [Concomitant]
  9. RED YEAST RICE [Concomitant]

REACTIONS (1)
  - MYALGIA [None]
